FAERS Safety Report 7914998-8 (Version None)
Quarter: 2011Q4

REPORT INFORMATION
  Report Type: 
  Country: None (occurrence: None)
  Receive Date: 20111115
  Receipt Date: 20111014
  Transmission Date: 20120403
  Serious: Yes (Hospitalization)
  Sender: FDA-Public Use
  Company Number: DE-ROCHE-794329

PATIENT
  Sex: Male
  Weight: 80 kg

DRUGS (6)
  1. XELODA [Suspect]
     Indication: RECTAL CANCER
     Dosage: FREQ: ON DAYS 1-33 WITHOUT WEEKENDS ACTUAL DOSE GIVEN AT LAST ADMIN: 3500MG THERAPY HELD
     Route: 048
  2. OXALIPLATIN [Suspect]
     Indication: RECTAL CANCER
     Dosage: FREQ: ON DAYS 1, 8, 15, 22 AND 29 OF CYCLE ACTUAL DOSE GIVEN AT LAST ADMIN: 105MG THERAPY HELD
     Route: 042
  3. METOPROLOL SUCCINATE [Concomitant]
     Indication: HYPERTENSION
     Route: 048
  4. LOPERAMIDE HCL [Concomitant]
     Indication: DIARRHOEA
     Route: 048
  5. ASPIRIN [Concomitant]
     Indication: HAEMODILUTION
     Route: 048
  6. ATORVASTATIN CALCIUM [Concomitant]
     Indication: HYPERCHOLESTEROLAEMIA
     Route: 048

REACTIONS (3)
  - URINARY RETENTION [None]
  - DIARRHOEA [None]
  - PROCTALGIA [None]
